FAERS Safety Report 19568113 (Version 2)
Quarter: 2021Q3

REPORT INFORMATION
  Report Type: Report from Study
  Country: FR (occurrence: FR)
  Receive Date: 20210716
  Receipt Date: 20210722
  Transmission Date: 20211014
  Serious: Yes (Hospitalization)
  Sender: FDA-Public Use
  Company Number: FR-ROCHE-2867694

PATIENT
  Age: 46 Year
  Sex: Female

DRUGS (3)
  1. CISPLATIN. [Suspect]
     Active Substance: CISPLATIN
     Indication: CERVIX CARCINOMA
     Dosage: 73 MG ON 20/MAY/2021 FOR A CUMULATIVE DOSE BEFORE EVENT ONSET OF 368 MG
     Route: 042
     Dates: start: 20210421
  2. FOLIC ACID. [Concomitant]
     Active Substance: FOLIC ACID
     Dosage: FOR FOUR MONTHS
  3. ATEZOLIZUMAB. [Suspect]
     Active Substance: ATEZOLIZUMAB
     Indication: CERVIX CARCINOMA
     Dosage: DATE OF MOST RECENT DOSE OF ATEZOLIZUMAB PRIOR (1200 MG) TO SERIOUS ADVERSE EVENT ONSET ON 10/JUN/20
     Route: 042
     Dates: start: 20210421

REACTIONS (3)
  - General physical health deterioration [Not Recovered/Not Resolved]
  - Anaemia [Not Recovered/Not Resolved]
  - Thyroiditis [Not Recovered/Not Resolved]

NARRATIVE: CASE EVENT DATE: 20210705
